FAERS Safety Report 19969120 (Version 1)
Quarter: 2021Q4

REPORT INFORMATION
  Report Type: Spontaneous
  Country: US (occurrence: US)
  Receive Date: 20211019
  Receipt Date: 20211019
  Transmission Date: 20220303
  Serious: No
  Sender: FDA-Public Use
  Company Number: US-GLENMARK PHARMACUTICALS 2020GMK050123

PATIENT

DRUGS (3)
  1. LIDOCAINE [Suspect]
     Active Substance: LIDOCAINE
     Indication: Pain management
     Dosage: UNK, BID
     Route: 061
     Dates: start: 20201008, end: 20201016
  2. LIDOCAINE [Suspect]
     Active Substance: LIDOCAINE
     Indication: Arthralgia
  3. BACLOFEN [Concomitant]
     Active Substance: BACLOFEN
     Indication: Muscle spasms
     Dosage: 10 MILLIGRAM, HS
     Route: 065
     Dates: start: 20201008

REACTIONS (1)
  - Drug ineffective for unapproved indication [Unknown]

NARRATIVE: CASE EVENT DATE: 20201008
